FAERS Safety Report 25454278 (Version 1)
Quarter: 2025Q2

REPORT INFORMATION
  Report Type: Report from Study
  Country: CA (occurrence: CA)
  Receive Date: 20250619
  Receipt Date: 20250619
  Transmission Date: 20250716
  Serious: Yes (Death, Hospitalization)
  Sender: ULTRAGENYX PHARMACEUTICAL
  Company Number: CA-ULTRAGENYX PHARMACEUTICAL INC.-CA-UGX-25-00909

PATIENT
  Age: 0 Year
  Sex: Female
  Weight: 7 kg

DRUGS (10)
  1. DOJOLVI [Suspect]
     Active Substance: TRIHEPTANOIN
     Indication: Fatty acid oxidation disorder
     Route: 048
     Dates: start: 20250503
  2. DOJOLVI [Suspect]
     Active Substance: TRIHEPTANOIN
     Route: 048
  3. DOJOLVI [Suspect]
     Active Substance: TRIHEPTANOIN
     Route: 048
  4. DOJOLVI [Suspect]
     Active Substance: TRIHEPTANOIN
     Route: 048
     Dates: start: 202505
  5. DOJOLVI [Suspect]
     Active Substance: TRIHEPTANOIN
     Dosage: 14 MILLILITER, QD
     Route: 048
     Dates: start: 2025
  6. DOJOLVI [Suspect]
     Active Substance: TRIHEPTANOIN
     Dosage: 15.5 MILLILITER, INCREASING WITH 0.5 RATE
     Route: 048
     Dates: start: 202506
  7. MEDIUM-CHAIN TRIGLYCERIDES [Suspect]
     Active Substance: MEDIUM-CHAIN TRIGLYCERIDES
     Indication: Product used for unknown indication
  8. TRAMADOL [Concomitant]
     Active Substance: TRAMADOL
     Indication: Product used for unknown indication
  9. LANSOPRAZOLE [Concomitant]
     Active Substance: LANSOPRAZOLE
     Indication: Product used for unknown indication
  10. IRON [Concomitant]
     Active Substance: IRON
     Indication: Product used for unknown indication

REACTIONS (9)
  - Death [Fatal]
  - Cardiac dysfunction [Unknown]
  - Blood creatine phosphokinase increased [Unknown]
  - Abnormal faeces [Unknown]
  - Feeling abnormal [Recovering/Resolving]
  - Fever neonatal [Unknown]
  - Illness [Unknown]
  - Drug intolerance [Unknown]
  - Contraindicated product administered [Not Recovered/Not Resolved]

NARRATIVE: CASE EVENT DATE: 20250501
